FAERS Safety Report 6926037-6 (Version None)
Quarter: 2010Q3

REPORT INFORMATION
  Report Type: 
  Country: None (occurrence: None)
  Receive Date: 20100816
  Receipt Date: 20100728
  Transmission Date: 20110219
  Serious: Yes (Hospitalization)
  Sender: FDA-Public Use
  Company Number: US-BAYER-201016117NA

PATIENT
  Age: 27 Year
  Sex: Female
  Weight: 131 kg

DRUGS (23)
  1. YAZ [Suspect]
     Indication: PRODUCT USED FOR UNKNOWN INDICATION
     Route: 048
  2. YASMIN [Suspect]
     Indication: PRODUCT USED FOR UNKNOWN INDICATION
     Route: 048
     Dates: start: 20041210, end: 20080102
  3. SPIRONOLACTONE [Concomitant]
  4. LIPITOR [Concomitant]
  5. IBUPROFEN [Concomitant]
  6. METFORMIN [Concomitant]
  7. HYDROCODONE BITARTRATE [Concomitant]
  8. AUGMENTIN '125' [Concomitant]
  9. FLONASE [Concomitant]
  10. LEVAQUIN [Concomitant]
  11. BIAXIN XL [Concomitant]
  12. DICYCLOMINE [Concomitant]
  13. AMOXICILLIN [Concomitant]
  14. SINGULAIR [Concomitant]
  15. PROMETHEGAN [Concomitant]
  16. OXYCODONE [Concomitant]
  17. FLUTICASONE NASAL [Concomitant]
  18. AMOXICILLIN AND CLAVULANATE POTASSIUM [Concomitant]
  19. PREVACID [Concomitant]
     Indication: GASTROOESOPHAGEAL REFLUX DISEASE
  20. MULTI-VITAMINS [Concomitant]
  21. FISH OIL [Concomitant]
  22. ACIDOPHILUS PEARL [Concomitant]
  23. PERCOCET [Concomitant]

REACTIONS (5)
  - ABDOMINAL PAIN [None]
  - ABDOMINAL PAIN UPPER [None]
  - CHOLECYSTITIS CHRONIC [None]
  - CHOLELITHIASIS [None]
  - GALLBLADDER CHOLESTEROLOSIS [None]
